FAERS Safety Report 5141740-9 (Version None)
Quarter: 2006Q4

REPORT INFORMATION
  Report Type: 
  Country: None (occurrence: None)
  Receive Date: 20061027
  Receipt Date: 20061009
  Transmission Date: 20070319
  Serious: Yes (Hospitalization)
  Sender: FDA-Public Use
  Company Number: DE200610001970

PATIENT
  Age: 82 Year
  Sex: Female

DRUGS (4)
  1. FORTEO [Suspect]
     Indication: OSTEOPOROSIS
     Dosage: 20 UG DAILY (1/D), SUBCUTANEOUS
     Route: 058
     Dates: start: 20050812
  2. FORTEO [Concomitant]
  3. ISOKET /GFR/ ISOSORBIDE DINITRATE [Concomitant]
  4. ANTIHYPERTENSIVES [Concomitant]

REACTIONS (1)
  - MYOCARDIAL INFARCTION [None]
